FAERS Safety Report 19010370 (Version 1)
Quarter: 2021Q1

REPORT INFORMATION
  Report Type: Spontaneous
  Country: US (occurrence: US)
  Receive Date: 20210316
  Receipt Date: 20210316
  Transmission Date: 20210420
  Serious: No
  Sender: FDA-Public Use
  Company Number: US-TEVA-2021-US-1891708

PATIENT
  Age: 57 Year

DRUGS (1)
  1. ALPRAZOLAM ACTAVIS [Suspect]
     Active Substance: ALPRAZOLAM
     Route: 065

REACTIONS (5)
  - Movement disorder [Unknown]
  - Feeling abnormal [Unknown]
  - Malaise [Unknown]
  - Hypoaesthesia [Unknown]
  - Panic attack [Unknown]
